FAERS Safety Report 6218240-8 (Version None)
Quarter: 2009Q2

REPORT INFORMATION
  Report Type: 
  Country: None (occurrence: None)
  Receive Date: 20090608
  Receipt Date: 20090601
  Transmission Date: 20091009
  Serious: Yes (Other)
  Sender: FDA-Public Use
  Company Number: B0577023A

PATIENT
  Age: 32 Year
  Sex: Female

DRUGS (1)
  1. ALLI [Suspect]
     Indication: DRUG USE FOR UNKNOWN INDICATION
     Route: 065
     Dates: start: 20090518

REACTIONS (1)
  - ANAL HAEMORRHAGE [None]
